FAERS Safety Report 16472598 (Version 1)
Quarter: 2019Q2

REPORT INFORMATION
  Report Type: Spontaneous
  Country: US (occurrence: US)
  Receive Date: 20190625
  Receipt Date: 20190625
  Transmission Date: 20190711
  Serious: Yes (Other)
  Sender: FDA-Public Use
  Company Number: US-009507513-1906USA008259

PATIENT
  Age: 9 Year
  Sex: Female

DRUGS (2)
  1. NOXAFIL [Suspect]
     Active Substance: POSACONAZOLE
     Indication: ANTIFUNGAL TREATMENT
     Dosage: 200 MILLIGRAM, QD
  2. FLUTICASONE. [Concomitant]
     Active Substance: FLUTICASONE
     Indication: PULMONARY CAVITATION

REACTIONS (5)
  - Drug interaction [Recovered/Resolved]
  - Adrenal insufficiency [Recovered/Resolved]
  - Growth failure [Recovered/Resolved]
  - Cushingoid [Recovered/Resolved]
  - Bone density decreased [Recovered/Resolved]
